FAERS Safety Report 12985575 (Version 2)
Quarter: 2016Q4

REPORT INFORMATION
  Report Type: Report from Study
  Country: NL (occurrence: NL)
  Receive Date: 20161130
  Receipt Date: 20161223
  Transmission Date: 20170207
  Serious: Yes (Hospitalization, Other)
  Sender: FDA-Public Use
  Company Number: NL-AMGEN-NLDSL2016167999

PATIENT
  Age: 46 Year
  Sex: Female

DRUGS (1)
  1. ARANESP [Suspect]
     Active Substance: DARBEPOETIN ALFA
     Indication: ANAEMIA OF MALIGNANT DISEASE
     Dosage: 500 MUG, 500MCG/ML 1.0ML) Q3WK
     Route: 058

REACTIONS (2)
  - Lung neoplasm malignant [Not Recovered/Not Resolved]
  - Ileus [Unknown]

NARRATIVE: CASE EVENT DATE: 20161124
